FAERS Safety Report 16268381 (Version 2)
Quarter: 2021Q2

REPORT INFORMATION
  Report Type: Other
  Country: CA (occurrence: CA)
  Receive Date: 20190503
  Receipt Date: 20210603
  Transmission Date: 20210716
  Serious: Yes (Other)
  Sender: FDA-Public Use
  Company Number: CA-ROCHE-2310815

PATIENT
  Age: 42 Year
  Sex: Male

DRUGS (1)
  1. OCREVUS [Suspect]
     Active Substance: OCRELIZUMAB
     Indication: RELAPSING-REMITTING MULTIPLE SCLEROSIS
     Dosage: 300 MG AT DAY 0 AND 14, THEN 600 MG EVERY 6 MONTH ;ONGOING: YES
     Route: 042
     Dates: start: 20190411

REACTIONS (8)
  - Rash papular [Unknown]
  - Hyperaesthesia [Unknown]
  - Oral herpes [Recovered/Resolved]
  - Pain [Unknown]
  - Feeling abnormal [Unknown]
  - Gait disturbance [Unknown]
  - Asthenia [Unknown]
  - Arthralgia [Not Recovered/Not Resolved]

NARRATIVE: CASE EVENT DATE: 20190413
